FAERS Safety Report 8514343-3 (Version None)
Quarter: 2012Q2

REPORT INFORMATION
  Report Type: 
  Country: None (occurrence: None)
  Receive Date: 20120406
  Receipt Date: 20120118
  Transmission Date: 20120825
  Serious: Yes (Hospitalization, Other)
  Sender: FDA-Public Use
  Company Number: US-CYPR-2011-000087

PATIENT
  Sex: Male
  Weight: 86 kg

DRUGS (8)
  1. CYPHER STENT [Concomitant]
  2. PLAVIX [Suspect]
     Indication: CORONARY ARTERY DISEASE
     Dosage: (75 MG QD ORAL)
     Route: 048
     Dates: start: 20111028
  3. HYDROCHLOROTHIAZIDE [Concomitant]
  4. CRESTOR [Concomitant]
  5. QUINAPRIL [Concomitant]
  6. ASPIRIN [Suspect]
     Indication: CORONARY ARTERY DISEASE
     Dosage: (81 MG QD ORAL)
     Route: 048
     Dates: start: 20070101
  7. CARDIZEM [Concomitant]
  8. CLOPIDOGREL [Suspect]
     Indication: ANTIPLATELET THERAPY
     Dosage: (75 MG QD ORAL)
     Route: 048
     Dates: start: 20110311, end: 20111027

REACTIONS (1)
  - CAROTID ARTERY STENOSIS [None]
